FAERS Safety Report 7707461-0 (Version None)
Quarter: 2011Q3

REPORT INFORMATION
  Report Type: 
  Country: None (occurrence: None)
  Receive Date: 20110824
  Receipt Date: 20110815
  Transmission Date: 20111222
  Serious: Yes (Hospitalization)
  Sender: FDA-Public Use
  Company Number: US-ASTRAZENECA-2009UW10132

PATIENT
  Sex: Female

DRUGS (4)
  1. PULMICORT [Suspect]
     Route: 055
  2. PULMICORT [Suspect]
     Route: 055
  3. PULMICORT [Suspect]
     Route: 055
  4. ALBUTEROL SULFATE AUTOHALER [Concomitant]

REACTIONS (3)
  - JOINT SWELLING [None]
  - CHRONIC OBSTRUCTIVE PULMONARY DISEASE [None]
  - ASTHMA [None]
